FAERS Safety Report 24312559 (Version 1)
Quarter: 2024Q3

REPORT INFORMATION
  Report Type: Spontaneous
  Country: US (occurrence: None)
  Receive Date: 20240912
  Receipt Date: 20240912
  Transmission Date: 20241017
  Serious: Yes (Hospitalization)
  Sender: Public
  Company Number: None

PATIENT
  Sex: Female

DRUGS (1)
  1. LENALIDOMIDE [Suspect]
     Active Substance: LENALIDOMIDE
     Indication: Myelodysplastic syndrome
     Dosage: 10MG PO??DOSE/FREQUENCY: TAKE 1 CAPSULE BY MOUTH 1 TIME A DAY FOR 21DAYS ON THEN 7 DAYS OFF
     Route: 048
     Dates: start: 202407

REACTIONS (2)
  - Illness [None]
  - Hospitalisation [None]
